FAERS Safety Report 11839498 (Version 10)
Quarter: 2019Q2

REPORT INFORMATION
  Report Type: Report from Study
  Country: CA (occurrence: CA)
  Receive Date: 20151216
  Receipt Date: 20190514
  Transmission Date: 20190711
  Serious: Yes (Hospitalization)
  Sender: FDA-Public Use
  Company Number: PHHY2015CA119952

PATIENT
  Age: 63 Year
  Sex: Male

DRUGS (3)
  1. CRESTOR [Concomitant]
     Active Substance: ROSUVASTATIN CALCIUM
     Indication: PRODUCT USED FOR UNKNOWN INDICATION
     Dosage: 2.5 MG, QD
     Route: 065
  2. AFINITOR [Suspect]
     Active Substance: EVEROLIMUS
     Indication: PRODUCT USED FOR UNKNOWN INDICATION
     Dosage: UNK
     Route: 048
  3. SANDOSTATIN LAR DEPOT [Suspect]
     Active Substance: OCTREOTIDE ACETATE
     Indication: CARCINOID TUMOUR
     Dosage: 30 MG, QMO (EVERY 4 WEEKS)
     Route: 030
     Dates: start: 20100715

REACTIONS (11)
  - Intestinal obstruction [Unknown]
  - Vomiting [Unknown]
  - Electrolyte imbalance [Unknown]
  - Abdominal pain [Unknown]
  - Blood pressure systolic increased [Unknown]
  - Peritonitis [Unknown]
  - Needle issue [Unknown]
  - Weight decreased [Unknown]
  - Hypotension [Unknown]
  - Syncope [Unknown]
  - Injection site pain [Unknown]

NARRATIVE: CASE EVENT DATE: 20150930
